FAERS Safety Report 6167648-8 (Version None)
Quarter: 2009Q2

REPORT INFORMATION
  Report Type: 
  Country: None (occurrence: None)
  Receive Date: 20090424
  Receipt Date: 20090415
  Transmission Date: 20091009
  Serious: Yes (Other)
  Sender: FDA-Public Use
  Company Number: PHHY2009JP10014

PATIENT
  Age: 16 Year
  Sex: Male

DRUGS (12)
  1. SANDIMMUNE [Suspect]
     Indication: BONE MARROW TRANSPLANT
     Dosage: 100 MG
     Route: 041
     Dates: start: 20070313, end: 20070423
  2. NEORAL [Suspect]
     Indication: BONE MARROW TRANSPLANT
     Dosage: UNK
     Route: 048
     Dates: start: 20070423, end: 20070101
  3. METHOTREXATE [Concomitant]
     Indication: BONE MARROW TRANSPLANT
     Dosage: 10 MG/M2, ONCE/SINGLE
  4. METHOTREXATE [Concomitant]
     Indication: PROPHYLAXIS AGAINST GRAFT VERSUS HOST DISEASE
     Dosage: 7 MG/M2, ONCE/SINGLE
  5. CYTARABINE [Concomitant]
     Indication: BONE MARROW TRANSPLANT
     Dosage: 4000 MG/M2
  6. CYCLOPHOSPHAMIDE [Concomitant]
     Indication: BONE MARROW TRANSPLANT
     Dosage: 60 MG/KG, ONCE/SINGLE
  7. IRRADIATION [Concomitant]
     Dosage: 4 GY, ONCE/SINGLE
  8. IRRADIATION [Concomitant]
     Dosage: 4 GY, ONCE/SINGLE
  9. FIRSTCIN [Concomitant]
     Dosage: 2 G
     Route: 042
     Dates: start: 20070318, end: 20070320
  10. FLUCONAZOLE [Concomitant]
     Dosage: 200 MG
     Route: 042
     Dates: start: 20070318, end: 20070418
  11. GRAN [Concomitant]
     Dosage: 150 UG
     Route: 042
     Dates: start: 20070322, end: 20070401
  12. ACYCLOVIR [Concomitant]
     Dosage: 160 MG
     Route: 042
     Dates: start: 20070307, end: 20070401

REACTIONS (2)
  - LIVER DISORDER [None]
  - SWOLLEN TONGUE [None]
